FAERS Safety Report 5581323-X (Version None)
Quarter: 2008Q1

REPORT INFORMATION
  Report Type: 
  Country: None (occurrence: None)
  Receive Date: 20080104
  Receipt Date: 20071227
  Transmission Date: 20080703
  Serious: Yes (Other)
  Sender: FDA-Public Use
  Company Number: PHBS2007JP21602

PATIENT
  Age: 82 Year
  Sex: Female

DRUGS (7)
  1. STARSIS [Suspect]
     Indication: DIABETES MELLITUS
     Dosage: 180 MG, QD
     Route: 048
     Dates: start: 20070120, end: 20070414
  2. OMEPRAZOLE [Concomitant]
     Dosage: 10 MG, UNK
     Dates: start: 20070106
  3. CONIEL [Concomitant]
     Dosage: 4 MG, UNK
     Dates: start: 20070106
  4. URSO 250 [Concomitant]
     Dosage: 200 MG, UNK
     Dates: start: 20070106
  5. PROHEPARUM [Concomitant]
     Dosage: UNK, UNK
     Dates: start: 20070106
  6. KAMAG G [Concomitant]
     Dosage: 1 G, UNK
     Dates: start: 20070106
  7. MICARDIS [Concomitant]
     Dosage: 40 MG, UNK
     Dates: start: 20070106

REACTIONS (2)
  - ABDOMINAL PAIN UPPER [None]
  - NAUSEA [None]
